FAERS Safety Report 9866770 (Version 3)
Quarter: 2014Q1

REPORT INFORMATION
  Report Type: Spontaneous
  Country: CA (occurrence: CA)
  Receive Date: 20140204
  Receipt Date: 20140213
  Transmission Date: 20141002
  Serious: Yes (Other)
  Sender: FDA-Public Use
  Company Number: CA-BEH-2013039131

PATIENT
  Age: 82 Year
  Sex: Female

DRUGS (4)
  1. PRIVIGEN [Suspect]
     Dosage: 20 GM X2; 3/4 DOSE GIVEN
     Route: 042
     Dates: start: 20131027, end: 20131027
  2. PRIVIGEN [Suspect]
     Route: 042
     Dates: start: 20131026
  3. PRIVIGEN [Suspect]
     Dosage: 20 GM X2
     Route: 042
     Dates: start: 20131025
  4. PRIVIGEN [Suspect]
     Dosage: 20GM X2
     Route: 042
     Dates: start: 20130202

REACTIONS (3)
  - Hypertension [Recovered/Resolved]
  - Pyrexia [Recovered/Resolved]
  - Chills [Recovered/Resolved]
